FAERS Safety Report 13935862 (Version 12)
Quarter: 2018Q2

REPORT INFORMATION
  Report Type: Report from Study
  Country: US (occurrence: US)
  Receive Date: 20170905
  Receipt Date: 20180508
  Transmission Date: 20180711
  Serious: Yes (Other)
  Sender: FDA-Public Use
  Company Number: US-JNJFOC-20170210516

PATIENT
  Age: 81 Year
  Sex: Male

DRUGS (32)
  1. BUMETANIDE. [Concomitant]
     Active Substance: BUMETANIDE
  2. CLONIDINE. [Concomitant]
     Active Substance: CLONIDINE
  3. FLUOROURACIL. [Suspect]
     Active Substance: FLUOROURACIL
     Indication: PRODUCT USED FOR UNKNOWN INDICATION
     Dosage: UNK
     Route: 065
  4. PACERONE [Concomitant]
     Active Substance: AMIODARONE HYDROCHLORIDE
  5. MAGNESIUM [Concomitant]
     Active Substance: MAGNESIUM
  6. MELOXICAM. [Concomitant]
     Active Substance: MELOXICAM
  7. MULTIVITAMINS [Concomitant]
     Active Substance: VITAMINS
  8. GABAPENTIN. [Concomitant]
     Active Substance: GABAPENTIN
  9. GLIPIZIDE. [Concomitant]
     Active Substance: GLIPIZIDE
  10. RITUXAN [Concomitant]
     Active Substance: RITUXIMAB
     Dosage: UNK, Q MONTHLY
  11. MAGNESIUM CITRATE. [Concomitant]
     Active Substance: MAGNESIUM CITRATE
  12. IMBRUVICA [Suspect]
     Active Substance: IBRUTINIB
     Indication: MANTLE CELL LYMPHOMA
     Route: 048
     Dates: start: 20170601, end: 20180119
  13. HYDRALAZINE [Concomitant]
     Active Substance: HYDRALAZINE HYDROCHLORIDE
  14. TYLENOL ARTHRITIS PAIN [Concomitant]
     Active Substance: ACETAMINOPHEN
  15. GELATIN [Concomitant]
     Active Substance: GELATIN
  16. IMBRUVICA [Suspect]
     Active Substance: IBRUTINIB
     Indication: MANTLE CELL LYMPHOMA
     Route: 048
     Dates: start: 20170117
  17. FINASTERIDE. [Concomitant]
     Active Substance: FINASTERIDE
  18. VITAMIN D [Concomitant]
     Active Substance: CHOLECALCIFEROL
  19. PANTOPRAZOLE [Concomitant]
     Active Substance: PANTOPRAZOLE
  20. DITROPAN [Concomitant]
     Active Substance: OXYBUTYNIN CHLORIDE
  21. METOPROLOL. [Concomitant]
     Active Substance: METOPROLOL
  22. SPIRONOLACTONE. [Concomitant]
     Active Substance: SPIRONOLACTONE
  23. POTASSIUM [Concomitant]
     Active Substance: POTASSIUM
  24. VITAMIN D3 [Concomitant]
     Active Substance: CHOLECALCIFEROL
  25. IMBRUVICA [Suspect]
     Active Substance: IBRUTINIB
     Indication: MANTLE CELL LYMPHOMA
     Route: 048
  26. ISOSORBIDE. [Concomitant]
     Active Substance: ISOSORBIDE
  27. IRON [Concomitant]
     Active Substance: IRON
  28. LORAZEPAM. [Concomitant]
     Active Substance: LORAZEPAM
  29. TYLENOL PM [Concomitant]
     Active Substance: ACETAMINOPHEN\DIPHENHYDRAMINE
  30. CALCIUM [Concomitant]
     Active Substance: CALCIUM
  31. GLIMEPIRIDE. [Concomitant]
     Active Substance: GLIMEPIRIDE
  32. MELATONIN [Concomitant]
     Active Substance: MELATONIN

REACTIONS (25)
  - Carpal tunnel syndrome [Not Recovered/Not Resolved]
  - Nodule [Not Recovered/Not Resolved]
  - Hypoaesthesia [Not Recovered/Not Resolved]
  - Eye contusion [Unknown]
  - Rash pruritic [Not Recovered/Not Resolved]
  - Haemorrhage [Not Recovered/Not Resolved]
  - Central venous catheterisation [Unknown]
  - Application site pain [Unknown]
  - Constipation [Not Recovered/Not Resolved]
  - Blister [Unknown]
  - Motor dysfunction [Not Recovered/Not Resolved]
  - Increased tendency to bruise [Not Recovered/Not Resolved]
  - Vertigo [Not Recovered/Not Resolved]
  - Skin discolouration [Unknown]
  - Back disorder [Not Recovered/Not Resolved]
  - Post procedural contusion [Unknown]
  - Post procedural haemorrhage [Not Recovered/Not Resolved]
  - Skin cancer [Not Recovered/Not Resolved]
  - Contusion [Not Recovered/Not Resolved]
  - Asthenia [Not Recovered/Not Resolved]
  - Nail disorder [Not Recovered/Not Resolved]
  - Onychoclasis [Not Recovered/Not Resolved]
  - Pruritus generalised [Not Recovered/Not Resolved]
  - Rash papular [Not Recovered/Not Resolved]
  - Peripheral swelling [Not Recovered/Not Resolved]

NARRATIVE: CASE EVENT DATE: 2017
